FAERS Safety Report 11701733 (Version 1)
Quarter: 2015Q4

REPORT INFORMATION
  Report Type: Spontaneous
  Country: US (occurrence: US)
  Receive Date: 20151105
  Receipt Date: 20151105
  Transmission Date: 20160304
  Serious: No
  Sender: FDA-Public Use
  Company Number: US-MALLINCKRODT-T201502714

PATIENT
  Sex: Male
  Weight: 77 kg

DRUGS (3)
  1. VALIUM [Concomitant]
     Active Substance: DIAZEPAM
  2. PERCOCET [Concomitant]
     Active Substance: ACETAMINOPHEN\OXYCODONE HYDROCHLORIDE
  3. FENTANYL TRANSDERMAL SYSTEM [Suspect]
     Active Substance: FENTANYL
     Indication: PAIN
     Dosage: 75 MCG/HR, Q72HRS
     Route: 062

REACTIONS (3)
  - Impaired driving ability [Unknown]
  - Stab wound [Unknown]
  - Drug withdrawal syndrome [Recovered/Resolved]
